FAERS Safety Report 4628869-6 (Version None)
Quarter: 2005Q2

REPORT INFORMATION
  Report Type: 
  Country: None (occurrence: None)
  Receive Date: 20050406
  Receipt Date: 20050324
  Transmission Date: 20051028
  Serious: Yes (Other)
  Sender: FDA-Public Use
  Company Number: 213362

PATIENT
  Age: 13 Year
  Sex: Male
  Weight: 49.9 kg

DRUGS (1)
  1. NUTROPIN [Suspect]
     Indication: GROWTH HORMONE DEFICIENCY
     Dosage: 1.7MG, QD, INTRAMUSCULAR
     Route: 030
     Dates: start: 20020131

REACTIONS (3)
  - ARTHRALGIA [None]
  - BONE LESION [None]
  - FIBROMA [None]
